FAERS Safety Report 5698036-6 (Version None)
Quarter: 2008Q2

REPORT INFORMATION
  Report Type: 
  Country: None (occurrence: None)
  Receive Date: 20080408
  Receipt Date: 20080331
  Transmission Date: 20081010
  Serious: Yes (Hospitalization)
  Sender: FDA-Public Use
  Company Number: FR-ROCHE-461211

PATIENT
  Sex: Male
  Weight: 54 kg

DRUGS (4)
  1. DACLIZUMAB [Suspect]
     Route: 065
     Dates: start: 20060823, end: 20060823
  2. DACLIZUMAB [Suspect]
     Route: 065
     Dates: start: 20060809, end: 20060809
  3. MYCOPHENOLATE MOFETIL [Suspect]
     Route: 048
     Dates: start: 20060712
  4. CYCLOSPORINE [Suspect]
     Route: 065
     Dates: start: 20060810

REACTIONS (1)
  - PYELONEPHRITIS [None]
